FAERS Safety Report 8732526 (Version 2)
Quarter: 2015Q2

REPORT INFORMATION
  Report Type: Report from Study
  Country: US (occurrence: US)
  Receive Date: 20120820
  Receipt Date: 20150409
  Transmission Date: 20150821
  Serious: Yes (Other)
  Sender: FDA-Public Use
  Company Number: US-ROCHE-1101241

PATIENT
  Sex: Male

DRUGS (11)
  1. LIDOCAINE. [Concomitant]
     Active Substance: LIDOCAINE
     Route: 042
  2. ACTIVASE [Suspect]
     Active Substance: ALTEPLASE
     Indication: ACUTE MYOCARDIAL INFARCTION
     Route: 065
  3. NITROGLYCERINE [Concomitant]
     Active Substance: NITROGLYCERIN
     Dosage: INCREASED EVENTUALLY
     Route: 065
  4. MORPHINE [Concomitant]
     Active Substance: MORPHINE
     Route: 065
  5. PEPCID [Concomitant]
     Active Substance: FAMOTIDINE
     Route: 042
  6. ATIVAN [Concomitant]
     Active Substance: LORAZEPAM
     Route: 042
  7. HEPARIN [Concomitant]
     Active Substance: HEPARIN SODIUM
     Dosage: 5000 UNITS
     Route: 040
  8. NITROGLYCERINE [Concomitant]
     Active Substance: NITROGLYCERIN
     Dosage: THREE TABLETS GIVEN
     Route: 060
  9. NITROGLYCERINE [Concomitant]
     Active Substance: NITROGLYCERIN
     Route: 042
  10. HEPARIN [Concomitant]
     Active Substance: HEPARIN SODIUM
     Dosage: 25 CC PER HOUR
     Route: 065
  11. ASA [Concomitant]
     Active Substance: ASPIRIN
     Route: 048

REACTIONS (9)
  - Hyperventilation [Unknown]
  - Cough [Unknown]
  - Emotional distress [Unknown]
  - Chest pain [Unknown]
  - Acute myocardial infarction [Unknown]
  - Anxiety [Unknown]
  - Ventricular extrasystoles [Unknown]
  - Abdominal symptom [Unknown]
  - Ventricular tachycardia [Unknown]
